FAERS Safety Report 16563722 (Version 1)
Quarter: 2019Q3

REPORT INFORMATION
  Report Type: Spontaneous
  Country: GB (occurrence: GB)
  Receive Date: 20190712
  Receipt Date: 20190712
  Transmission Date: 20191004
  Serious: Yes (Congenital Anomaly)
  Sender: FDA-Public Use
  Company Number: GB-B.I. PHARMACEUTICALS,INC./RIDGEFIELD-2019-12-002114

PATIENT
  Age: 3 Year
  Sex: Male

DRUGS (2)
  1. VIRAMUNE [Suspect]
     Active Substance: NEVIRAPINE
     Indication: HIV INFECTION
     Route: 064
     Dates: start: 2011
  2. TRUVADA [Suspect]
     Active Substance: EMTRICITABINE\TENOFOVIR DISOPROXIL FUMARATE
     Indication: HIV INFECTION
     Dosage: TENOFOVIR 245MG AND EMTRICITABINE 200MG.
     Route: 064
     Dates: start: 2011

REACTIONS (3)
  - Foetal exposure during pregnancy [Unknown]
  - Developmental delay [Unknown]
  - Speech disorder developmental [Unknown]

NARRATIVE: CASE EVENT DATE: 20181213
